FAERS Safety Report 5656889-1 (Version None)
Quarter: 2008Q1

REPORT INFORMATION
  Report Type: 
  Country: None (occurrence: None)
  Receive Date: 20080306
  Receipt Date: 20080306
  Transmission Date: 20080703
  Serious: Yes (Other)
  Sender: FDA-Public Use
  Company Number: None

PATIENT
  Age: 35 Year
  Sex: Male
  Weight: 124.7392 kg

DRUGS (1)
  1. CHANTIX [Suspect]
     Indication: SMOKER
     Dates: start: 20080101, end: 20080201

REACTIONS (2)
  - DELUSION [None]
  - PSYCHIATRIC DECOMPENSATION [None]
